FAERS Safety Report 24229459 (Version 1)
Quarter: 2024Q3

REPORT INFORMATION
  Report Type: Spontaneous
  Country: DE (occurrence: DE)
  Receive Date: 20240820
  Receipt Date: 20240820
  Transmission Date: 20241017
  Serious: Yes (Other)
  Sender: ANI
  Company Number: DE-ANIPHARMA-2024-DE-000106

PATIENT
  Sex: Female

DRUGS (1)
  1. CANDESARTAN CILEXETIL [Suspect]
     Active Substance: CANDESARTAN CILEXETIL
     Indication: Product used for unknown indication
     Dosage: 4 MG DAILY / 4 MG BID / 4 MG TID
     Route: 048
     Dates: start: 20240622

REACTIONS (2)
  - Hypertensive crisis [Unknown]
  - Blood pressure increased [Unknown]

NARRATIVE: CASE EVENT DATE: 20240701
